FAERS Safety Report 8007246-4 (Version None)
Quarter: 2011Q4

REPORT INFORMATION
  Report Type: 
  Country: None (occurrence: None)
  Receive Date: 20111227
  Receipt Date: 20111215
  Transmission Date: 20120403
  Serious: Yes (Hospitalization)
  Sender: FDA-Public Use
  Company Number: JP-UCBSA-047779

PATIENT
  Age: 3 Year
  Sex: Male
  Weight: 8 kg

DRUGS (4)
  1. KEPPRA [Suspect]
     Route: 048
  2. KEPPRA [Suspect]
     Indication: EPILEPSY
     Route: 048
     Dates: start: 20111215
  3. VALPROATE SODIUM [Concomitant]
  4. ZONISAMIDE [Concomitant]
     Indication: EPILEPSY

REACTIONS (2)
  - MONOCYTE COUNT INCREASED [None]
  - PYREXIA [None]
